FAERS Safety Report 4932770-8 (Version None)
Quarter: 2006Q1

REPORT INFORMATION
  Report Type: 
  Country: None (occurrence: None)
  Receive Date: 20060306
  Receipt Date: 20060220
  Transmission Date: 20060701
  Serious: Yes (Hospitalization)
  Sender: FDA-Public Use
  Company Number: PHFR2006GB00913

PATIENT
  Age: 74 Year

DRUGS (5)
  1. DICLOFENAC [Suspect]
     Indication: PAIN
     Dosage: 75 MG SR
     Route: 048
     Dates: start: 20060120, end: 20060123
  2. AMLODIPINE [Concomitant]
     Route: 048
  3. WARFARIN SODIUM [Concomitant]
     Route: 048
  4. CANDESARTAN [Concomitant]
     Dosage: 8 MG, QD
     Route: 048
  5. BENDROFLUAZIDE [Concomitant]
     Dosage: 2.5 MG, QD
     Route: 048

REACTIONS (4)
  - COUGH [None]
  - DYSPNOEA [None]
  - PNEUMONITIS [None]
  - WHEEZING [None]
